FAERS Safety Report 25932092 (Version 2)
Quarter: 2025Q4

REPORT INFORMATION
  Report Type: Report from Study
  Country: EU (occurrence: None)
  Receive Date: 20251016
  Receipt Date: 20251203
  Transmission Date: 20260117
  Serious: Yes (Other)
  Sender: UCB
  Company Number: EU-UCBSA-2025064934

PATIENT
  Age: 38 Year
  Weight: 88 kg

DRUGS (1)
  1. BIMEKIZUMAB [Suspect]
     Active Substance: BIMEKIZUMAB
     Indication: Axial spondyloarthritis
     Dosage: 160 MILLIGRAM, MONTHLY (QM)

REACTIONS (1)
  - Colitis [Recovered/Resolved]
